FAERS Safety Report 18124272 (Version 2)
Quarter: 2020Q3

REPORT INFORMATION
  Report Type: Report from Study
  Country: CA (occurrence: CA)
  Receive Date: 20200807
  Receipt Date: 20200831
  Transmission Date: 20201103
  Serious: Yes (Other)
  Sender: FDA-Public Use
  Company Number: CA-JNJFOC-20200523810

PATIENT
  Sex: Male
  Weight: 91.7 kg

DRUGS (2)
  1. REMICADE [Suspect]
     Active Substance: INFLIXIMAB
     Indication: COLITIS ULCERATIVE
     Dosage: ON 06?JUL?2020, THE PATIENT RECEIVED 40TH INFLIXIMAB INFUSION FOR DOSE OF 400 MG
     Route: 042
     Dates: start: 20160121
  2. REMICADE [Suspect]
     Active Substance: INFLIXIMAB
     Indication: PYODERMA GANGRENOSUM
     Route: 042
     Dates: start: 20200818

REACTIONS (5)
  - Wound complication [Unknown]
  - Off label use [Unknown]
  - Pyoderma gangrenosum [Unknown]
  - Wound [Unknown]
  - Incorrect drug administration rate [Unknown]
